FAERS Safety Report 4821947-8 (Version None)
Quarter: 2005Q4

REPORT INFORMATION
  Report Type: 
  Country: None (occurrence: None)
  Receive Date: 20051103
  Receipt Date: 20051019
  Transmission Date: 20060501
  Serious: Yes (Disabling)
  Sender: FDA-Public Use
  Company Number: 200510IM000637

PATIENT
  Age: 62 Year
  Sex: Female

DRUGS (1)
  1. ADVAFERON (A643_INTERFERON ALFACON-1) [Suspect]
     Indication: HEPATITIS C
     Dosage: SUBCUTANEOUS
     Route: 058
     Dates: start: 20030602, end: 20030623

REACTIONS (6)
  - ABDOMINAL PAIN UPPER [None]
  - AUTOPHONY [None]
  - DEAFNESS [None]
  - DIZZINESS [None]
  - DYSPHONIA [None]
  - TINNITUS [None]
